FAERS Safety Report 13824601 (Version 2)
Quarter: 2017Q3

REPORT INFORMATION
  Report Type: Report from Study
  Country: DE (occurrence: DE)
  Receive Date: 20170802
  Receipt Date: 20170818
  Transmission Date: 20171127
  Serious: Yes (Death, Hospitalization)
  Sender: FDA-Public Use
  Company Number: DE-CELGENEUS-DEU-20170705677

PATIENT
  Age: 47 Year
  Sex: Female
  Weight: 58.8 kg

DRUGS (1)
  1. ABRAXANE [Suspect]
     Active Substance: PACLITAXEL
     Indication: BREAST CANCER
     Route: 041
     Dates: start: 20170418, end: 20170606

REACTIONS (2)
  - Pleural effusion [Fatal]
  - Breast cancer metastatic [Recovered/Resolved]

NARRATIVE: CASE EVENT DATE: 20170703
